FAERS Safety Report 23062306 (Version 1)
Quarter: 2023Q4

REPORT INFORMATION
  Report Type: Spontaneous
  Country: US (occurrence: None)
  Receive Date: 20231013
  Receipt Date: 20231013
  Transmission Date: 20240110
  Serious: No
  Sender: FDA-Public Use
  Company Number: 2023A225306

PATIENT

DRUGS (2)
  1. BREZTRI [Suspect]
     Active Substance: BUDESONIDE\FORMOTEROL\GLYCOPYRROLATE
     Route: 055
  2. ALLEGRA [Concomitant]
     Active Substance: FEXOFENADINE HYDROCHLORIDE

REACTIONS (10)
  - Headache [Unknown]
  - Swelling face [Unknown]
  - Insomnia [Unknown]
  - Arthritis [Unknown]
  - Vision blurred [Unknown]
  - Nervousness [Unknown]
  - Productive cough [Unknown]
  - Urinary incontinence [Unknown]
  - Sputum discoloured [Unknown]
  - Product use issue [Unknown]
